FAERS Safety Report 11859197 (Version 1)
Quarter: 2015Q4

REPORT INFORMATION
  Report Type: Spontaneous
  Country: FR (occurrence: FR)
  Receive Date: 20151222
  Receipt Date: 20151222
  Transmission Date: 20160305
  Serious: Yes (Other)
  Sender: FDA-Public Use
  Company Number: FR-009507513-1512FRA009260

PATIENT
  Age: 51 Year
  Sex: Male

DRUGS (3)
  1. ISENTRESS [Suspect]
     Active Substance: RALTEGRAVIR POTASSIUM
     Dosage: UNK
     Route: 048
     Dates: start: 20150701, end: 20150703
  2. VALIUM [Suspect]
     Active Substance: DIAZEPAM
     Dosage: 1 SINGLE DOSE ON MIDDAY AND ON THE SAME EVENING
     Route: 048
     Dates: start: 20150701, end: 20150702
  3. SERESTA [Concomitant]
     Active Substance: OXAZEPAM
     Route: 048

REACTIONS (3)
  - Abnormal behaviour [Recovered/Resolved]
  - Confusional state [Recovered/Resolved]
  - Aggression [Recovered/Resolved]

NARRATIVE: CASE EVENT DATE: 20150701
